FAERS Safety Report 6631111-8 (Version None)
Quarter: 2010Q1

REPORT INFORMATION
  Report Type: 
  Country: None (occurrence: None)
  Receive Date: 20100309
  Receipt Date: 20100222
  Transmission Date: 20100710
  Serious: Yes (Hospitalization, Disabling)
  Sender: FDA-Public Use
  Company Number: 2006-151141-NL

PATIENT
  Age: 48 Year
  Sex: Female
  Weight: 64.9 kg

DRUGS (12)
  1. NUVARING [Suspect]
     Indication: MENOPAUSAL SYMPTOMS
     Dosage: ; VAG
     Route: 067
     Dates: start: 20060925, end: 20061015
  2. NUVARING [Suspect]
     Indication: MENORRHAGIA
     Dosage: ; VAG
     Route: 067
     Dates: start: 20060925, end: 20061015
  3. NUVARING [Suspect]
     Indication: MENOPAUSAL SYMPTOMS
     Dosage: ; VAG
     Route: 067
     Dates: start: 20050302
  4. NUVARING [Suspect]
     Indication: MENORRHAGIA
     Dosage: ; VAG
     Route: 067
     Dates: start: 20050302
  5. ASACOL [Concomitant]
  6. PURINETHOL [Concomitant]
  7. PREDNISONE TAB [Concomitant]
  8. IMIPRAMINE [Concomitant]
  9. EFFEXOR [Concomitant]
  10. AMBIEN [Concomitant]
  11. XANAX [Concomitant]
  12. ASTELIN [Concomitant]

REACTIONS (23)
  - ACUTE RESPIRATORY FAILURE [None]
  - AMNESIA [None]
  - ANAEMIA [None]
  - ANTINUCLEAR ANTIBODY POSITIVE [None]
  - ANTITHROMBIN III INCREASED [None]
  - COAGULATION FACTOR VIII LEVEL INCREASED [None]
  - CONFUSIONAL STATE [None]
  - CRYING [None]
  - DEHYDRATION [None]
  - DEPRESSION [None]
  - DRUG SCREEN POSITIVE [None]
  - ENCEPHALOMALACIA [None]
  - FALSE POSITIVE LABORATORY RESULT [None]
  - FATIGUE [None]
  - GRAND MAL CONVULSION [None]
  - HAEMORRHAGIC INFARCTION [None]
  - IMPAIRED DRIVING ABILITY [None]
  - MENORRHAGIA [None]
  - NAUSEA [None]
  - PROTEIN C INCREASED [None]
  - TRANSVERSE SINUS THROMBOSIS [None]
  - VASOGENIC CEREBRAL OEDEMA [None]
  - VOMITING [None]
